FAERS Safety Report 4653673-2 (Version None)
Quarter: 2005Q2

REPORT INFORMATION
  Report Type: 
  Country: None (occurrence: None)
  Receive Date: 20050505
  Receipt Date: 20050427
  Transmission Date: 20051028
  Serious: Yes (Life-Threatening, Hospitalization)
  Sender: FDA-Public Use
  Company Number: DE-JNJFOC-20050406852

PATIENT
  Age: 64 Year
  Sex: Male

DRUGS (2)
  1. FENTANYL [Suspect]
     Route: 062
  2. FENTANYL [Suspect]
     Route: 062

REACTIONS (1)
  - ADRENAL CORTICAL INSUFFICIENCY [None]
